FAERS Safety Report 6919916-7 (Version None)
Quarter: 2010Q3

REPORT INFORMATION
  Report Type: 
  Country: None (occurrence: None)
  Receive Date: 20100811
  Receipt Date: 20100805
  Transmission Date: 20110219
  Serious: Yes (Other)
  Sender: FDA-Public Use
  Company Number: BR-SANOFI-AVENTIS-2010SA046580

PATIENT
  Age: 59 Year
  Sex: Female
  Weight: 68 kg

DRUGS (11)
  1. LANTUS [Suspect]
     Indication: TYPE 2 DIABETES MELLITUS
     Route: 058
     Dates: start: 20100623
  2. AUTOPEN 24 [Suspect]
  3. OMEPRAZOLE [Concomitant]
     Indication: GASTRIC DISORDER
     Route: 048
  4. VITAMIN B COMPLEX CAP [Concomitant]
     Route: 048
  5. FOLIC ACID [Concomitant]
     Route: 048
  6. ATENSINA [Concomitant]
     Indication: HYPERTENSION
     Route: 048
  7. SERTRALINE HYDROCHLORIDE [Concomitant]
     Indication: ANTIDEPRESSANT THERAPY
     Route: 048
  8. HIDANTAL [Concomitant]
     Indication: ANTIDEPRESSANT THERAPY
     Route: 048
  9. ASPIRIN [Concomitant]
     Route: 048
  10. ATENOLOL [Concomitant]
     Route: 048
  11. LEXOTAN [Concomitant]
     Indication: ANXIETY
     Route: 048

REACTIONS (3)
  - CONDITION AGGRAVATED [None]
  - INJECTION SITE HAEMORRHAGE [None]
  - RENAL DISORDER [None]
